FAERS Safety Report 7533840-0 (Version None)
Quarter: 2011Q2

REPORT INFORMATION
  Report Type: 
  Country: None (occurrence: None)
  Receive Date: 20110608
  Receipt Date: 20060524
  Transmission Date: 20111010
  Serious: Yes (Other)
  Sender: FDA-Public Use
  Company Number: PHNU2006AU02108

PATIENT
  Sex: Male

DRUGS (4)
  1. CLOZAPINE [Suspect]
     Dosage: 500 MG/DAY
     Route: 048
  2. CLOZAPINE [Suspect]
     Dosage: 400 MG/DAY
     Route: 048
     Dates: start: 20031126
  3. CLOZAPINE [Suspect]
     Dosage: 100 MG/DAY
     Route: 048
  4. CLOZAPINE [Suspect]
     Dosage: 250 MG/DAY
     Route: 048

REACTIONS (6)
  - OCCULT BLOOD [None]
  - VOMITING [None]
  - ABDOMINAL DISCOMFORT [None]
  - GASTRITIS EROSIVE [None]
  - NAUSEA [None]
  - GASTRITIS [None]
